FAERS Safety Report 4957296-7 (Version None)
Quarter: 2006Q1

REPORT INFORMATION
  Report Type: 
  Country: None (occurrence: None)
  Receive Date: 20060323
  Receipt Date: 20060317
  Transmission Date: 20060701
  Serious: Yes (Other)
  Sender: FDA-Public Use
  Company Number: 006927

PATIENT
  Sex: Female

DRUGS (3)
  1. MEDROXYPROGESTERONE ACETATE [Suspect]
     Dates: start: 19910101, end: 20030101
  2. PREMARIN [Suspect]
     Dates: start: 19910101, end: 20030101
  3. PROVERA [Suspect]
     Dates: start: 19910101, end: 20030101

REACTIONS (1)
  - BREAST CANCER FEMALE [None]
